FAERS Safety Report 7176828-4 (Version None)
Quarter: 2010Q4

REPORT INFORMATION
  Report Type: 
  Country: None (occurrence: None)
  Receive Date: 20101220
  Receipt Date: 20101210
  Transmission Date: 20110411
  Serious: Yes (Hospitalization)
  Sender: FDA-Public Use
  Company Number: US-JNJFOC-20101204906

PATIENT
  Sex: Female
  Weight: 86.18 kg

DRUGS (4)
  1. DURAGESIC-100 [Suspect]
     Indication: FIBROMYALGIA
     Route: 062
  2. DURAGESIC-100 [Suspect]
     Route: 062
  3. NATURAL THYROID [Concomitant]
     Indication: HYPOTHYROIDISM
     Route: 048
  4. WATER PILL NOS [Concomitant]
     Indication: OEDEMA PERIPHERAL
     Route: 048

REACTIONS (8)
  - ARTHROPOD BITE [None]
  - BLADDER DISORDER [None]
  - BLOOD PRESSURE INCREASED [None]
  - DRUG EFFECT DECREASED [None]
  - JOINT SWELLING [None]
  - PAIN [None]
  - PRODUCT PACKAGING ISSUE [None]
  - WRONG TECHNIQUE IN DRUG USAGE PROCESS [None]
